FAERS Safety Report 16659611 (Version 1)
Quarter: 2019Q3

REPORT INFORMATION
  Report Type: Spontaneous
  Country: NL (occurrence: NL)
  Receive Date: 20190802
  Receipt Date: 20190802
  Transmission Date: 20191004
  Serious: Yes (Other)
  Sender: FDA-Public Use
  Company Number: NL-AUROBINDO-AUR-APL-2019-044980

PATIENT

DRUGS (8)
  1. FUCIDIN [Concomitant]
     Active Substance: FUSIDATE SODIUM
     Indication: PRODUCT USED FOR UNKNOWN INDICATION
     Dosage: 20MG/G ON INGUINAL REGION
     Route: 065
     Dates: start: 20180502
  2. TRACYDAL [Interacting]
     Active Substance: TRANYLCYPROMINE SULFATE
     Indication: DEPRESSIVE SYMPTOM
     Dosage: 20 MILLIGRAM, ONCE A DAY
     Route: 065
     Dates: start: 20180507
  3. TRACYDAL [Interacting]
     Active Substance: TRANYLCYPROMINE SULFATE
     Dosage: 30 MG IN THE MORNING AND 20 MG AROUND NOON
     Route: 065
     Dates: start: 20180604
  4. TRACYDAL [Interacting]
     Active Substance: TRANYLCYPROMINE SULFATE
     Dosage: 20 MILLIGRAM
     Route: 065
     Dates: start: 20180701
  5. OXAZEPAM. [Interacting]
     Active Substance: OXAZEPAM
     Indication: PRODUCT USED FOR UNKNOWN INDICATION
     Dosage: 10MG DAILY IF NEEDED
     Route: 065
  6. TRACYDAL [Interacting]
     Active Substance: TRANYLCYPROMINE SULFATE
     Dosage: IN THE MORNING AND AROUND NOON
     Route: 048
     Dates: start: 20180528
  7. TRACYDAL [Interacting]
     Active Substance: TRANYLCYPROMINE SULFATE
     Dosage: 40 MILLIGRAM, ONCE A DAY
     Route: 065
     Dates: start: 20180607
  8. ATENOLOL. [Suspect]
     Active Substance: ATENOLOL
     Indication: PRODUCT USED FOR UNKNOWN INDICATION
     Dosage: 25 MILLIGRAM, ONCE A DAY
     Route: 065
     Dates: start: 20170331

REACTIONS (7)
  - Nausea [Recovered/Resolved]
  - Heart rate decreased [Recovered/Resolved]
  - Headache [Recovered/Resolved]
  - Malaise [Unknown]
  - Hypertensive crisis [Recovered/Resolved]
  - Blood pressure increased [Recovered/Resolved]
  - Potentiating drug interaction [Unknown]

NARRATIVE: CASE EVENT DATE: 20180602
